FAERS Safety Report 23501734 (Version 2)
Quarter: 2024Q1

REPORT INFORMATION
  Report Type: Spontaneous
  Country: FR (occurrence: FR)
  Receive Date: 20240208
  Receipt Date: 20240215
  Transmission Date: 20240410
  Serious: Yes (Hospitalization, Other)
  Sender: FDA-Public Use
  Company Number: FR-009507513-2312FRA008360

PATIENT
  Age: 49 Year
  Sex: Female
  Weight: 79 kg

DRUGS (15)
  1. CARBOPLATIN [Suspect]
     Active Substance: CARBOPLATIN
     Indication: Triple negative breast cancer
     Dosage: 600 MILLIGRAM, QOW
     Route: 042
     Dates: start: 20230719, end: 20230814
  2. CARBOPLATIN [Suspect]
     Active Substance: CARBOPLATIN
     Dosage: DECREASED 75%
     Route: 042
     Dates: start: 20230814, end: 20231002
  3. CARBOPLATIN [Suspect]
     Active Substance: CARBOPLATIN
     Dosage: 1 DOSAGE FORM, QW (1.5 AUC EVERY WEEK, REDUCED TO 75% FROM 14-AUG-2023)
     Route: 042
     Dates: start: 20230719, end: 20231002
  4. TAXOL [Suspect]
     Active Substance: PACLITAXEL
     Indication: Triple negative breast cancer
     Dosage: 80 MILLIGRAM/KILOGRAM, QOW
     Route: 042
     Dates: start: 20230719, end: 20230911
  5. TAXOL [Suspect]
     Active Substance: PACLITAXEL
     Dosage: 1 DOSAGE FORM, QW (80 MG/M2 EVERY 7 DAYS)
     Route: 042
     Dates: start: 20230719, end: 20231002
  6. TAXOL [Suspect]
     Active Substance: PACLITAXEL
     Indication: Triple negative breast cancer
     Dosage: DECREASED AT 65/MG/KG
     Route: 065
     Dates: end: 20231002
  7. KEYTRUDA [Suspect]
     Active Substance: PEMBROLIZUMAB
     Indication: Triple negative breast cancer
     Dosage: 200 MILLIGRAM, Q3W
     Route: 065
     Dates: start: 20230719, end: 20230719
  8. KEYTRUDA [Suspect]
     Active Substance: PEMBROLIZUMAB
     Dosage: 200 MILLIGRAM, Q3W
     Route: 065
     Dates: start: 20230807, end: 20230807
  9. KEYTRUDA [Suspect]
     Active Substance: PEMBROLIZUMAB
     Dosage: 200 MILLIGRAM, Q3W
     Route: 065
     Dates: start: 20230828, end: 20230828
  10. FERINJECT [Concomitant]
     Active Substance: FERRIC CARBOXYMALTOSE
     Indication: Anaemia
     Dosage: 500 MILLIGRAM, QD
     Route: 042
     Dates: end: 20230911
  11. FERINJECT [Concomitant]
     Active Substance: FERRIC CARBOXYMALTOSE
     Indication: Iron deficiency anaemia
     Dosage: 2 GRAM (1 G/INJECTION ON 28-AUG-2023 AND ON 11-SEP-2023)
     Route: 042
     Dates: start: 20230828, end: 20230911
  12. KEYTRUDA [Concomitant]
     Active Substance: PEMBROLIZUMAB
     Indication: Triple negative breast cancer
     Dosage: 200 MILLIGRAM, Q3W
     Route: 042
     Dates: end: 20230918
  13. OLANZAPINE [Concomitant]
     Active Substance: OLANZAPINE
     Dosage: 5 MILLIGRAM, QD
     Route: 065
  14. ACETAMINOPHEN [Concomitant]
     Active Substance: ACETAMINOPHEN
     Indication: Pain
     Dosage: 1 GRAM
     Route: 065
  15. ANTIHISTAMINES NOS [Concomitant]
     Active Substance: ANTIHISTAMINES NOS
     Indication: Hypersensitivity
     Dosage: UNK
     Route: 065

REACTIONS (15)
  - Acute kidney injury [Unknown]
  - Dysphonia [Recovered/Resolved]
  - Arthralgia [Recovered/Resolved]
  - Drug intolerance [Unknown]
  - Lymphadenopathy [Recovered/Resolved]
  - Viral infection [Unknown]
  - Asthenia [Recovered/Resolved]
  - Dyspnoea [Unknown]
  - Laryngeal oedema [Recovered/Resolved]
  - Face oedema [Recovered/Resolved]
  - Hypotension [Recovered/Resolved]
  - Pyrexia [Recovered/Resolved]
  - Vomiting [Recovered/Resolved]
  - Nausea [Recovered/Resolved]
  - Inappropriate schedule of product administration [Unknown]

NARRATIVE: CASE EVENT DATE: 20230807
